FAERS Safety Report 8964976 (Version 1)
Quarter: 2012Q4

REPORT INFORMATION
  Report Type: 
  Country: GB (occurrence: GB)
  Receive Date: 20121214
  Receipt Date: 20121214
  Transmission Date: 20130627
  Serious: Yes (Life-Threatening, Disabling)
  Sender: FDA-Public Use
  Company Number: GB-ROCHE-1168772

PATIENT
  Age: 20 Year
  Sex: Male
  Weight: 64.41 kg

DRUGS (1)
  1. ROACCUTANE [Suspect]
     Indication: ACNE
     Route: 048

REACTIONS (4)
  - Depression [Recovered/Resolved with Sequelae]
  - Arthralgia [Not Recovered/Not Resolved]
  - Lethargy [Not Recovered/Not Resolved]
  - Muscle disorder [Not Recovered/Not Resolved]
